FAERS Safety Report 10659045 (Version 1)
Quarter: 2014Q4

REPORT INFORMATION
  Report Type: Spontaneous
  Country: US (occurrence: None)
  Receive Date: 20141216
  Receipt Date: 20141216
  Transmission Date: 20150529
  Serious: Yes (Life-Threatening, Hospitalization)
  Sender: FDA-Public Use
  Company Number: None

PATIENT
  Age: 36 Year
  Sex: Male
  Weight: 98.88 kg

DRUGS (4)
  1. BLEOMYCIN [Suspect]
     Active Substance: BLEOMYCIN SULFATE
     Indication: TESTIS CANCER
     Dates: start: 20140915, end: 20141120
  2. CISPLATIN. [Concomitant]
     Active Substance: CISPLATIN
  3. VP16 [Concomitant]
     Active Substance: ETOPOSIDE
  4. ANTIEMETICS [Concomitant]
     Active Substance: UNSPECIFIED INGREDIENT

REACTIONS (3)
  - Product quality issue [None]
  - Respiratory failure [None]
  - Pulmonary toxicity [None]

NARRATIVE: CASE EVENT DATE: 20141212
